FAERS Safety Report 20214417 (Version 1)
Quarter: 2021Q4

REPORT INFORMATION
  Report Type: Spontaneous
  Country: US (occurrence: US)
  Receive Date: 20211221
  Receipt Date: 20211221
  Transmission Date: 20220304
  Serious: Yes (Other)
  Sender: FDA-Public Use
  Company Number: US-TEVA-2021-US-1989416

PATIENT
  Age: 75 Year
  Sex: Female

DRUGS (2)
  1. SOTALOL [Suspect]
     Active Substance: SOTALOL
     Indication: Atrial fibrillation
     Route: 065
     Dates: start: 20171023, end: 20171204
  2. INDERAL [Concomitant]
     Active Substance: PROPRANOLOL HYDROCHLORIDE
     Indication: Heart rate increased
     Dosage: TAKEN FROM THE AGE OF 20 YEARS UNTIL A FEW WEEKS AGO (RELATIVE TO 12-DEC-2017)

REACTIONS (1)
  - Drug ineffective [Unknown]
